FAERS Safety Report 8726263 (Version 2)
Quarter: 2012Q4

REPORT INFORMATION
  Report Type: 
  Country: US (occurrence: US)
  Receive Date: 20120816
  Receipt Date: 20120904
  Transmission Date: 20130627
  Serious: Yes (Other)
  Sender: FDA-Public Use
  Company Number: US-PFIZER INC-2012198889

PATIENT
  Age: 54 Year
  Sex: Female
  Weight: 52.15 kg

DRUGS (2)
  1. SERTRALINE HCL [Suspect]
     Indication: DEPRESSION
     Dosage: 100 mg, 1x/day
     Route: 048
     Dates: start: 2009, end: 201105
  2. SYNTHROID [Concomitant]
     Indication: THYROID DISORDER
     Dosage: 125 ug, 1x/day

REACTIONS (3)
  - Bladder cancer [Recovering/Resolving]
  - Abdominal pain upper [Recovered/Resolved]
  - Back pain [Recovered/Resolved]
